FAERS Safety Report 9547321 (Version 1)
Quarter: 2013Q2

REPORT INFORMATION
  Report Type: Spontaneous
  Country: US (occurrence: None)
  Receive Date: 20130606
  Receipt Date: 20130606
  Transmission Date: 20140414
  Serious: No
  Sender: FDA-Public Use
  Company Number: 2013PROUSA02616

PATIENT
  Age: 66 Year
  Sex: Male
  Weight: 88.4 kg

DRUGS (4)
  1. PROVENGE (SIPULEUCEL-T) SUSPENSION, 250ML [Suspect]
     Indication: PROSTATE CANCER METASTATIC
     Route: 042
     Dates: start: 20121213, end: 20121213
  2. ACYCLOVIR(ACICLOVIR) [Concomitant]
  3. PRAVASTATIN(PRAVASTATIN SODIUM) [Concomitant]
  4. ASPIRIN(ACETYLSALICYLIC ACID) [Concomitant]

REACTIONS (1)
  - Disease progression [None]
